FAERS Safety Report 7967889-0 (Version None)
Quarter: 2011Q4

REPORT INFORMATION
  Report Type: 
  Country: None (occurrence: None)
  Receive Date: 20111209
  Receipt Date: 20111124
  Transmission Date: 20120403
  Serious: Yes (Life-Threatening, Other)
  Sender: FDA-Public Use
  Company Number: FR-ROCHE-1016391

PATIENT
  Age: 63 Year
  Sex: Male

DRUGS (12)
  1. COPEGUS [Suspect]
     Dates: start: 20110811
  2. LANSOPRAZOLE [Concomitant]
     Dates: start: 20110722
  3. NEORECORMON [Concomitant]
     Dates: start: 20090610
  4. COPEGUS [Suspect]
     Indication: HEPATITIS C
     Route: 048
     Dates: start: 20110330
  5. COPEGUS [Concomitant]
     Dates: start: 20100219
  6. VICTRELIS [Suspect]
     Indication: HEPATITIS C
     Route: 065
     Dates: start: 20110509
  7. VIRAFERONPEG [Suspect]
     Indication: HEPATITIS C
     Route: 058
     Dates: start: 20110330
  8. PEGASYS [Concomitant]
     Dates: start: 20051004, end: 20060103
  9. MICONAZOLE [Concomitant]
     Dates: start: 20110722
  10. VIRAFERONPEG [Suspect]
     Route: 058
     Dates: start: 20110915
  11. TOPLEXIL (FRANCE) [Concomitant]
     Dates: start: 20110722
  12. PEGASYS [Concomitant]
     Dates: start: 20060104

REACTIONS (3)
  - LYMPHOMA [None]
  - ANAEMIA [None]
  - THROMBOCYTOPENIA [None]
